FAERS Safety Report 6899206-1 (Version None)
Quarter: 2010Q3

REPORT INFORMATION
  Report Type: 
  Country: None (occurrence: None)
  Receive Date: 20100802
  Receipt Date: 20080131
  Transmission Date: 20110219
  Serious: No
  Sender: FDA-Public Use
  Company Number: US-PFIZER INC-2007099959

PATIENT
  Age: 57 Year
  Sex: Male
  Weight: 88.45 kg

DRUGS (5)
  1. LYRICA [Suspect]
     Indication: DIABETIC NEUROPATHY
     Dates: start: 20070101, end: 20070801
  2. ACTOS [Concomitant]
  3. CARDIZEM [Concomitant]
  4. VYTORIN [Concomitant]
  5. GLIMEPIRIDE [Concomitant]

REACTIONS (1)
  - BACK PAIN [None]
